FAERS Safety Report 8396461-6 (Version None)
Quarter: 2012Q2

REPORT INFORMATION
  Report Type: 
  Country: None (occurrence: None)
  Receive Date: 20120530
  Receipt Date: 20120516
  Transmission Date: 20120825
  Serious: Yes (Hospitalization)
  Sender: FDA-Public Use
  Company Number: US-ALEXION-A201200856

PATIENT
  Sex: Male

DRUGS (16)
  1. SENNA-MINT WAF [Concomitant]
     Dosage: 2 TABS, Q HS, PRN
     Route: 048
  2. SOLIRIS [Suspect]
     Indication: PAROXYSMAL NOCTURNAL HAEMOGLOBINURIA
     Dosage: 600 MG, QW
     Route: 042
     Dates: start: 20120301
  3. VITAMIN B-12 [Concomitant]
     Dosage: 250 ?G, QD
     Route: 048
  4. BLEOMYCIN [Concomitant]
     Indication: HODGKIN'S DISEASE
     Dosage: UNK
  5. DOXORUBICIN HCL [Concomitant]
     Indication: HODGKIN'S DISEASE
     Dosage: UNK
  6. COLACE [Concomitant]
     Dosage: 100 MG, HS
     Route: 048
  7. COMPAZINE [Concomitant]
     Indication: NAUSEA
     Dosage: 10 MG, Q 6 HOURS, PRN
     Route: 048
  8. FERREX [Concomitant]
     Dosage: 1 CAP BID
     Route: 048
  9. ZOFRAN [Concomitant]
     Indication: NAUSEA
     Dosage: 8 MG, Q 8 HOURS, PRN
     Route: 048
  10. OXYCODONE HCL [Concomitant]
     Indication: PAIN
     Dosage: 5-10 MG, Q 4 HOURS
     Route: 048
  11. AMBIEN [Concomitant]
     Dosage: 10 MG Q HS
     Route: 048
  12. SOLIRIS [Suspect]
     Dosage: 900 MG, Q2W
     Dates: start: 20120101
  13. FOLIC ACID [Concomitant]
     Dosage: 1 MG, QD
     Route: 048
  14. ATIVAN [Concomitant]
     Indication: NAUSEA
     Dosage: 1 MG, Q 4 HOURS PRN
     Route: 048
  15. VINCRISTINE [Concomitant]
     Indication: HODGKIN'S DISEASE
     Dosage: UNK
  16. DACARBAZINE [Concomitant]
     Indication: HODGKIN'S DISEASE
     Dosage: UNK

REACTIONS (5)
  - HAEMATOCRIT DECREASED [None]
  - BACTERAEMIA [None]
  - NEUTROPENIA [None]
  - BLOOD PRODUCT TRANSFUSION DEPENDENT [None]
  - LIVER FUNCTION TEST ABNORMAL [None]
